FAERS Safety Report 5854152-7 (Version None)
Quarter: 2008Q3

REPORT INFORMATION
  Report Type: 
  Country: None (occurrence: None)
  Receive Date: 20080822
  Receipt Date: 20080617
  Transmission Date: 20090109
  Serious: No
  Sender: FDA-Public Use
  Company Number: US-BAYER-200826962NA

PATIENT
  Age: 51 Year
  Sex: Female

DRUGS (2)
  1. ULTRAVIST 300 [Suspect]
     Indication: COMPUTERISED TOMOGRAM THORAX
     Dosage: TOTAL DAILY DOSE: 100 ML  UNIT DOSE: 50 ML
     Route: 042
     Dates: start: 20080613, end: 20080613
  2. XANAX [Concomitant]

REACTIONS (2)
  - PRURITUS [None]
  - URTICARIA [None]
